FAERS Safety Report 21358765 (Version 3)
Quarter: 2023Q2

REPORT INFORMATION
  Report Type: Spontaneous
  Country: JP (occurrence: JP)
  Receive Date: 20220921
  Receipt Date: 20230519
  Transmission Date: 20230722
  Serious: Yes (Other)
  Sender: FDA-Public Use
  Company Number: JP-CHUGAI-2022035886

PATIENT
  Age: 64 Year
  Sex: Female
  Weight: 51.8 kg

DRUGS (15)
  1. ACTEMRA [Suspect]
     Active Substance: TOCILIZUMAB
     Indication: Rheumatoid arthritis
     Route: 058
     Dates: start: 20210817, end: 20220715
  2. ACTEMRA [Suspect]
     Active Substance: TOCILIZUMAB
     Dosage: 162 MILLIGRAM, ONCE/3WEEKS
     Route: 058
     Dates: start: 20220715, end: 20220716
  3. ACTEMRA [Suspect]
     Active Substance: TOCILIZUMAB
     Indication: Rheumatoid arthritis
     Route: 041
     Dates: start: 2013
  4. ACTEMRA [Suspect]
     Active Substance: TOCILIZUMAB
     Route: 041
  5. ACTEMRA [Suspect]
     Active Substance: TOCILIZUMAB
     Dosage: 400 MG/60.7KG,
     Route: 041
     Dates: start: 20210706, end: 20210706
  6. ACTEMRA [Suspect]
     Active Substance: TOCILIZUMAB
     Dosage: 400 MG/50.5KG
     Route: 041
     Dates: start: 20220916
  7. ELDECALCITOL [Concomitant]
     Active Substance: ELDECALCITOL
     Dosage: UNK
     Route: 048
     Dates: start: 20210719
  8. LIPITOR [Concomitant]
     Active Substance: ATORVASTATIN CALCIUM
     Dosage: UNK
     Route: 048
  9. GASTER [Concomitant]
     Active Substance: FAMOTIDINE
     Dosage: UNK
     Route: 048
  10. MINODRONIC ACID [Concomitant]
     Active Substance: MINODRONIC ACID
     Dosage: UNK
     Route: 048
     Dates: start: 20210626
  11. ICOSAPENT ETHYL [Concomitant]
     Active Substance: ICOSAPENT ETHYL
     Dosage: UNK
     Route: 065
     Dates: start: 20210626
  12. LORCAM TABLET [Concomitant]
     Dosage: UNK
     Route: 048
     Dates: start: 20210626, end: 20210626
  13. LORCAM TABLET [Concomitant]
     Dosage: UNK
     Route: 048
     Dates: start: 20210626, end: 20210701
  14. AMOXICILLIN [Concomitant]
     Active Substance: AMOXICILLIN
     Dosage: UNK
     Route: 048
     Dates: start: 20210626, end: 20210701
  15. LACB-R [Concomitant]
     Dosage: UNK
     Route: 048
     Dates: start: 20210626, end: 20210701

REACTIONS (6)
  - Lymphopenia [Recovered/Resolved]
  - Schizophrenia [Not Recovered/Not Resolved]
  - Hypothyroidism [Unknown]
  - Hepatic function abnormal [Recovered/Resolved]
  - Anaemia [Recovering/Resolving]
  - Off label use [Unknown]

NARRATIVE: CASE EVENT DATE: 20200205
